FAERS Safety Report 4950374-8 (Version None)
Quarter: 2006Q1

REPORT INFORMATION
  Report Type: 
  Country: None (occurrence: None)
  Receive Date: 20060322
  Receipt Date: 20060309
  Transmission Date: 20060701
  Serious: Yes (Other)
  Sender: FDA-Public Use
  Company Number: PHBS2006US03777

PATIENT
  Age: 57 Year
  Sex: Female

DRUGS (3)
  1. ZOMETA [Suspect]
     Indication: METASTASES TO BONE
     Route: 042
  2. AREDIA [Suspect]
     Indication: METASTASES TO BONE
     Route: 042
  3. CHEMOTHERAPEUTICS,OTHER [Concomitant]

REACTIONS (18)
  - BONE DEBRIDEMENT [None]
  - BONE DISORDER [None]
  - BREATH ODOUR [None]
  - DYSPHONIA [None]
  - EXOPHTHALMOS [None]
  - FISTULA [None]
  - INFLAMMATION [None]
  - OSTECTOMY [None]
  - OSTEONECROSIS [None]
  - PALATAL DISORDER [None]
  - PERIORBITAL CELLULITIS [None]
  - PROSTHESIS IMPLANTATION [None]
  - SINUS OPERATION [None]
  - SINUSITIS FUNGAL [None]
  - SURGERY [None]
  - SWELLING FACE [None]
  - TOOTH DISORDER [None]
  - WOUND SECRETION [None]
